FAERS Safety Report 26113087 (Version 1)
Quarter: 2025Q4

REPORT INFORMATION
  Report Type: Spontaneous
  Country: US (occurrence: US)
  Receive Date: 20251202
  Receipt Date: 20251202
  Transmission Date: 20260117
  Serious: No
  Sender: SANOFI AVENTIS
  Company Number: US-SA-2025SA360004

PATIENT
  Age: 76 Year
  Sex: Female

DRUGS (3)
  1. DUPIXENT [Suspect]
     Active Substance: DUPILUMAB
     Indication: Chronic obstructive pulmonary disease
     Dosage: 300 MG, QOW
     Route: 058
     Dates: start: 20241220
  2. OHTUVAYRE [Suspect]
     Active Substance: ENSIFENTRINE
     Dosage: UNK
     Dates: start: 202511
  3. TOBRAMYCIN [Concomitant]
     Active Substance: TOBRAMYCIN

REACTIONS (4)
  - Weight decreased [Unknown]
  - Anosmia [Unknown]
  - Ageusia [Unknown]
  - Decreased appetite [Unknown]

NARRATIVE: CASE EVENT DATE: 20250101
